FAERS Safety Report 19685184 (Version 1)
Quarter: 2021Q3

REPORT INFORMATION
  Report Type: Spontaneous
  Country: US (occurrence: US)
  Receive Date: 20210810
  Receipt Date: 20210810
  Transmission Date: 20211014
  Serious: Yes (Death)
  Sender: FDA-Public Use
  Company Number: None

PATIENT
  Age: 38 Year
  Sex: Male

DRUGS (1)
  1. KRATOM WHITE MAENG DA [Suspect]
     Active Substance: HERBALS\MITRAGYNINE
     Dosage: ?          OTHER FREQUENCY:EVERY 3 OR FOUR;?
     Route: 048

REACTIONS (2)
  - Toxicity to various agents [None]
  - Accidental death [None]

NARRATIVE: CASE EVENT DATE: 20200830
